FAERS Safety Report 5782111-1 (Version None)
Quarter: 2008Q2

REPORT INFORMATION
  Report Type: 
  Country: None (occurrence: None)
  Receive Date: 20080618
  Receipt Date: 20080609
  Transmission Date: 20081010
  Serious: Yes (Other)
  Sender: FDA-Public Use
  Company Number: L08-GER-02054-01

PATIENT

DRUGS (2)
  1. PROPRANOLOL [Suspect]
     Indication: PORTAL VEIN PRESSURE INCREASED
     Dosage: 20 MG BID
  2. IRBESARTAN [Concomitant]

REACTIONS (2)
  - NO THERAPEUTIC RESPONSE [None]
  - OESOPHAGEAL VARICES HAEMORRHAGE [None]
